FAERS Safety Report 5531289-3 (Version None)
Quarter: 2007Q4

REPORT INFORMATION
  Report Type: 
  Country: None (occurrence: None)
  Receive Date: 20071113
  Receipt Date: 20071026
  Transmission Date: 20080405
  Serious: Yes (Death, Hospitalization)
  Sender: FDA-Public Use
  Company Number: THYM-11555

PATIENT
  Age: 57 Year
  Sex: Male

DRUGS (2)
  1. THYMOGLOBULIN [Suspect]
     Indication: RENAL TRANSPLANT
  2. CYCLOSPORINE [Concomitant]

REACTIONS (9)
  - CYTOMEGALOVIRUS INFECTION [None]
  - GENERAL PHYSICAL HEALTH DETERIORATION [None]
  - KIDNEY TRANSPLANT REJECTION [None]
  - LEUKOPENIA [None]
  - MULTI-ORGAN FAILURE [None]
  - PNEUMOCYSTIS JIROVECI PNEUMONIA [None]
  - PNEUMONIA PRIMARY ATYPICAL [None]
  - SEPTIC SHOCK [None]
  - URINARY TRACT INFECTION [None]
